FAERS Safety Report 9640036 (Version 3)
Quarter: 2018Q2

REPORT INFORMATION
  Report Type: Report from Study
  Country: JP (occurrence: JP)
  Receive Date: 20131023
  Receipt Date: 20180418
  Transmission Date: 20180711
  Serious: Yes (Hospitalization, Other)
  Sender: FDA-Public Use
  Company Number: PHHY2013JP118810

PATIENT
  Age: 70 Year
  Sex: Male
  Weight: 76 kg

DRUGS (17)
  1. DIOVAN [Concomitant]
     Active Substance: VALSARTAN
     Indication: HYPERTENSION
     Dosage: 80 MG, QD
     Route: 048
  2. AVONEX [Concomitant]
     Active Substance: INTERFERON BETA-1A
     Indication: MULTIPLE SCLEROSIS
     Dosage: 30 UG, QW
     Route: 030
     Dates: end: 20130405
  3. ENDOXAN [Concomitant]
     Active Substance: CYCLOPHOSPHAMIDE
     Indication: MULTIPLE SCLEROSIS
     Dosage: 1000 MG, QD
     Route: 065
     Dates: start: 20121127, end: 20121127
  4. LIORESAL [Suspect]
     Active Substance: BACLOFEN
     Dosage: 35 MG, QD
     Route: 048
     Dates: start: 20130708
  5. LIORESAL [Suspect]
     Active Substance: BACLOFEN
     Indication: PARALYSIS
     Dosage: 30 MG, QD
     Route: 048
     Dates: end: 20130707
  6. SOL-MELCORT [Concomitant]
     Active Substance: METHYLPREDNISOLONE SODIUM SUCCINATE
     Indication: MULTIPLE SCLEROSIS
     Dosage: 1000 MG, QD
     Route: 065
     Dates: start: 20121120, end: 20121122
  7. ENDOXAN [Concomitant]
     Active Substance: CYCLOPHOSPHAMIDE
     Dosage: 1000 MG, QD
     Route: 065
     Dates: start: 20130201, end: 20130201
  8. SOL-MELCORT [Concomitant]
     Active Substance: METHYLPREDNISOLONE SODIUM SUCCINATE
     Dosage: 1000 MG, QD
     Route: 065
     Dates: start: 20130322, end: 20130324
  9. LIORESAL [Suspect]
     Active Substance: BACLOFEN
     Dosage: 40 MG, QD
     Route: 048
     Dates: start: 20130710
  10. MYONAL [Concomitant]
     Active Substance: EPERISONE HYDROCHLORIDE
     Indication: PARALYSIS
     Dosage: 150 MG, QD
     Route: 048
  11. SOL-MELCORT [Concomitant]
     Active Substance: METHYLPREDNISOLONE SODIUM SUCCINATE
     Dosage: 1000 MG, QD
     Route: 065
     Dates: start: 20130129, end: 20130131
  12. SOL-MELCORT [Concomitant]
     Active Substance: METHYLPREDNISOLONE SODIUM SUCCINATE
     Dosage: 1000 MG, QD
     Route: 065
     Dates: start: 20130329, end: 20130331
  13. FLIVAS [Concomitant]
     Active Substance: NAFTOPIDIL
     Indication: BENIGN PROSTATIC HYPERPLASIA
     Dosage: 50 MG, QD
     Route: 048
  14. LYRICA [Concomitant]
     Active Substance: PREGABALIN
     Indication: SENSORY DISTURBANCE
     Dosage: 150 MG, QD
     Route: 048
  15. VITAMEDIN [Concomitant]
     Active Substance: CYANOCOBALAMIN\PYRIDOXINE HYDROCHLORIDE\THIAMINE
     Indication: SENSORY DISTURBANCE
     Dosage: 75 MG, QD
     Route: 048
  16. GILENYA [Suspect]
     Active Substance: FINGOLIMOD HYDROCHLORIDE
     Indication: MULTIPLE SCLEROSIS
     Dosage: 0.5 MG, QD
     Route: 048
     Dates: start: 20130409, end: 20130823
  17. SYMMETREL [Concomitant]
     Active Substance: AMANTADINE HYDROCHLORIDE
     Indication: MALAISE
     Dosage: 150 MG, QD
     Route: 048

REACTIONS (6)
  - Lymphocyte count decreased [Unknown]
  - Alanine aminotransferase increased [Unknown]
  - Somnolence [Recovered/Resolved]
  - Gamma-glutamyltransferase increased [Unknown]
  - Muscle spasticity [Not Recovered/Not Resolved]
  - White blood cell count decreased [Unknown]

NARRATIVE: CASE EVENT DATE: 20130426
